FAERS Safety Report 5089799-1 (Version None)
Quarter: 2006Q3

REPORT INFORMATION
  Report Type: 
  Country: None (occurrence: None)
  Receive Date: 20060823
  Receipt Date: 20060811
  Transmission Date: 20061208
  Serious: Yes (Death)
  Sender: FDA-Public Use
  Company Number: 2006-BP-09368RO

PATIENT
  Age: 20 Year
  Sex: Male

DRUGS (1)
  1. COCAINE HC1 TOPICAL SOLUTION, 4% (COCAINE) [Suspect]
     Indication: LOCAL ANAESTHESIA
     Dosage: 20% X 1 DOSE (SEE TEXT), TO
     Route: 061

REACTIONS (2)
  - ANAESTHETIC COMPLICATION CARDIAC [None]
  - CARDIO-RESPIRATORY ARREST [None]
